FAERS Safety Report 10895811 (Version 2)
Quarter: 2015Q2

REPORT INFORMATION
  Report Type: Report from Study
  Country: US (occurrence: US)
  Receive Date: 20150307
  Receipt Date: 20150420
  Transmission Date: 20150821
  Serious: Yes (Hospitalization)
  Sender: FDA-Public Use
  Company Number: US-BIOGENIDEC-2015BI025240

PATIENT
  Age: 51 Year
  Sex: Female

DRUGS (1)
  1. PLEGRIDY [Suspect]
     Active Substance: PEGINTERFERON BETA-1A
     Indication: MULTIPLE SCLEROSIS
     Dates: start: 20150107, end: 20150204

REACTIONS (13)
  - Pain [Recovered/Resolved]
  - Fear of injection [Unknown]
  - Pyrexia [Recovered/Resolved]
  - Urticaria [Not Recovered/Not Resolved]
  - Stress [Recovered/Resolved]
  - Injection site urticaria [Unknown]
  - Acute psychosis [Recovered/Resolved]
  - Altered state of consciousness [Recovered/Resolved]
  - Injection site erythema [Unknown]
  - Injection site warmth [Unknown]
  - Time perception altered [Recovered/Resolved]
  - Intentional self-injury [Recovered/Resolved]
  - Injection site pruritus [Unknown]

NARRATIVE: CASE EVENT DATE: 2015
